FAERS Safety Report 19703976 (Version 6)
Quarter: 2021Q3

REPORT INFORMATION
  Report Type: Spontaneous
  Country: US (occurrence: US)
  Receive Date: 20210816
  Receipt Date: 20210921
  Transmission Date: 20211014
  Serious: Yes (Other)
  Sender: FDA-Public Use
  Company Number: US-HIKMA PHARMACEUTICALS USA INC.-US-H14001-21-03169

PATIENT
  Sex: Female

DRUGS (1)
  1. METHADONE [Suspect]
     Active Substance: METHADONE HYDROCHLORIDE
     Indication: PAIN MANAGEMENT
     Route: 048
     Dates: start: 202101

REACTIONS (20)
  - Emotional distress [Unknown]
  - Condition aggravated [Unknown]
  - Weight decreased [Unknown]
  - Bruxism [Unknown]
  - Decreased activity [Unknown]
  - Skin wrinkling [Unknown]
  - Anxiety [Unknown]
  - Muscle spasms [Unknown]
  - Helplessness [Unknown]
  - Feeling abnormal [Unknown]
  - Insomnia [Unknown]
  - Crying [Unknown]
  - Malaise [Unknown]
  - Seizure [Unknown]
  - Hypotonia [Unknown]
  - Pain [Unknown]
  - Drug ineffective [Unknown]
  - Medication error [Unknown]
  - Adverse event [Unknown]
  - Arthralgia [Unknown]
